FAERS Safety Report 8153122-6 (Version None)
Quarter: 2012Q1

REPORT INFORMATION
  Report Type: 
  Country: None (occurrence: None)
  Receive Date: 20120221
  Receipt Date: 20120210
  Transmission Date: 20120608
  Serious: Yes (Hospitalization)
  Sender: FDA-Public Use
  Company Number: US-EISAI INC-E7389-02062-CLI-US

PATIENT
  Sex: Female

DRUGS (7)
  1. LANTUS [Concomitant]
     Dosage: 34 UNITS
  2. HALAVEN [Suspect]
     Indication: BREAST CANCER
     Route: 041
     Dates: start: 20111208, end: 20120126
  3. METFORMIN HCL [Concomitant]
  4. LOSARTAN POTASSIUM AND HYDROCHLOROTHIAZIDE [Concomitant]
  5. CARBOPLATIN [Suspect]
     Indication: BREAST CANCER
     Dosage: AUC 6
     Route: 041
     Dates: start: 20111208, end: 20120119
  6. SIMVASTATIN [Concomitant]
     Dosage: 20
  7. HUMALOG SSI [Concomitant]

REACTIONS (4)
  - PULMONARY EMBOLISM [None]
  - DYSPNOEA EXERTIONAL [None]
  - ANAEMIA [None]
  - DIZZINESS [None]
